FAERS Safety Report 18266499 (Version 1)
Quarter: 2020Q3

REPORT INFORMATION
  Report Type: Spontaneous
  Country: US (occurrence: US)
  Receive Date: 20200914
  Receipt Date: 20200914
  Transmission Date: 20201103
  Serious: Yes (Other)
  Sender: FDA-Public Use
  Company Number: None

PATIENT
  Age: 55 Year
  Sex: Female
  Weight: 93 kg

DRUGS (15)
  1. REMDESIVIR. [Suspect]
     Active Substance: REMDESIVIR
     Indication: COVID-19
     Route: 042
     Dates: start: 20200912, end: 20200913
  2. ATORVASTATIN [Concomitant]
     Active Substance: ATORVASTATIN
     Dates: start: 20200911
  3. LATANOPROST. [Concomitant]
     Active Substance: LATANOPROST
     Dates: start: 20200910
  4. PREGABALIN. [Concomitant]
     Active Substance: PREGABALIN
     Dates: start: 20200910
  5. CALCITROL [Concomitant]
     Dates: start: 20200911
  6. ISOSORBIDE. [Concomitant]
     Active Substance: ISOSORBIDE
     Dates: start: 20200911
  7. SEVLAMER CARBONATE [Concomitant]
     Dates: start: 20200911
  8. TORSEMIDE. [Concomitant]
     Active Substance: TORSEMIDE
     Dates: start: 20200911
  9. AMLODIPINE [Concomitant]
     Active Substance: AMLODIPINE BESYLATE
     Dates: start: 20200911
  10. BRIMONIDINE [Concomitant]
     Active Substance: BRIMONIDINE TARTRATE
     Dates: start: 20200910
  11. FLUOXETINE [Concomitant]
     Active Substance: FLUOXETINE HYDROCHLORIDE
     Dates: start: 20200911
  12. TRAMADOL. [Concomitant]
     Active Substance: TRAMADOL
     Dates: start: 20200910
  13. REMDESIVIR. [Suspect]
     Active Substance: REMDESIVIR
     Indication: COVID-19
     Dosage: ?          OTHER FREQUENCY:1X ONLY;?
     Route: 042
     Dates: start: 20200911, end: 20200911
  14. CARVEDILOL. [Concomitant]
     Active Substance: CARVEDILOL
     Dates: start: 20200911
  15. DEXAMETHASON [Concomitant]
     Active Substance: DEXAMETHASONE
     Dates: start: 20200913

REACTIONS (4)
  - Pulse absent [None]
  - Unresponsive to stimuli [None]
  - Torsade de pointes [None]
  - Cough [None]

NARRATIVE: CASE EVENT DATE: 20200913
